FAERS Safety Report 8005658-6 (Version None)
Quarter: 2011Q4

REPORT INFORMATION
  Report Type: 
  Country: None (occurrence: None)
  Receive Date: 20111223
  Receipt Date: 20111213
  Transmission Date: 20120403
  Serious: Yes (Life-Threatening, Hospitalization)
  Sender: FDA-Public Use
  Company Number: DE-JNJFOC-20111008733

PATIENT
  Age: 84 Year
  Sex: Female

DRUGS (6)
  1. PANTOPRAZOLE SODIUM [Concomitant]
     Dates: start: 20081201
  2. BROMAZEPAM [Concomitant]
     Dates: start: 20090101, end: 20110824
  3. REPAGLINIDE [Concomitant]
     Dates: start: 20100121, end: 20110824
  4. METOCLOPRAMIDE [Concomitant]
     Dates: start: 20090501, end: 20110101
  5. RAMIPRIL [Suspect]
     Indication: PRODUCT USED FOR UNKNOWN INDICATION
     Route: 048
     Dates: start: 20100421, end: 20110824
  6. IBUPROFEN [Suspect]
     Indication: PRODUCT USED FOR UNKNOWN INDICATION
     Route: 048
     Dates: start: 20090101, end: 20110824

REACTIONS (5)
  - RENAL FAILURE ACUTE [None]
  - BLOOD URIC ACID INCREASED [None]
  - FLUID INTAKE REDUCED [None]
  - DEHYDRATION [None]
  - INADEQUATE DIET [None]
